FAERS Safety Report 8900872 (Version 6)
Quarter: 2013Q4

REPORT INFORMATION
  Report Type: Report from Study
  Country: RU (occurrence: RU)
  Receive Date: 20121109
  Receipt Date: 20131220
  Transmission Date: 20140711
  Serious: Yes (Other)
  Sender: FDA-Public Use
  Company Number: RU-009507513-1211RUS000096

PATIENT
  Age: 53 Year
  Sex: Male
  Weight: 77.5 kg

DRUGS (6)
  1. BOCEPREVIR [Suspect]
     Indication: CHRONIC HEPATITIS C
     Dosage: 800 MG, TID
     Route: 048
     Dates: start: 20120313, end: 20121030
  2. BOCEPREVIR [Suspect]
     Dosage: UNK
     Route: 048
     Dates: start: 20121109
  3. PEGINTRON [Suspect]
     Indication: CHRONIC HEPATITIS C
     Dosage: 120 MICROGRAM (0.5 ML), QW
     Route: 058
     Dates: start: 20120213, end: 20121030
  4. PEGINTRON [Suspect]
     Dosage: UNK
     Dates: start: 20121109
  5. RIBAVIRIN [Suspect]
     Indication: CHRONIC HEPATITIS C
     Dosage: 400 MG (MORNING), 600 MG (EVENING), BID
     Route: 048
     Dates: start: 20120213, end: 20121030
  6. RIBAVIRIN [Suspect]
     Dosage: UNK
     Dates: start: 20121109

REACTIONS (1)
  - Neutropenia [Recovered/Resolved]
